FAERS Safety Report 25847185 (Version 2)
Quarter: 2025Q4

REPORT INFORMATION
  Report Type: Spontaneous
  Country: BR (occurrence: BR)
  Receive Date: 20250925
  Receipt Date: 20251001
  Transmission Date: 20260118
  Serious: Yes (Life-Threatening)
  Sender: GE HEALTHCARE
  Company Number: BR-GE HEALTHCARE-2025CSU012794

PATIENT
  Age: 81 Year
  Sex: Male

DRUGS (2)
  1. OMNIPAQUE [Suspect]
     Active Substance: IOHEXOL
     Indication: Computerised tomogram abdomen
     Dosage: 100 ML, TOTAL
     Route: 042
     Dates: start: 20250821
  2. OMNIPAQUE [Suspect]
     Active Substance: IOHEXOL
     Indication: Angiogram

REACTIONS (3)
  - Air embolism [Recovered/Resolved]
  - Inadvertent injection air bubble [Recovered/Resolved]
  - Device malfunction [Recovered/Resolved]

NARRATIVE: CASE EVENT DATE: 20250821
